FAERS Safety Report 5534498-2 (Version None)
Quarter: 2007Q4

REPORT INFORMATION
  Report Type: 
  Country: None (occurrence: None)
  Receive Date: 20071204
  Receipt Date: 20071204
  Transmission Date: 20080405
  Serious: Yes (Other)
  Sender: FDA-Public Use
  Company Number: None

PATIENT
  Sex: Female
  Weight: 63.5036 kg

DRUGS (1)
  1. ZYRTEC [Suspect]
     Indication: MULTIPLE ALLERGIES
     Dosage: 10 MG  1 PER DAY  PO
     Route: 048
     Dates: start: 19970901, end: 20070724

REACTIONS (3)
  - DRUG DOSE OMISSION [None]
  - URTICARIA [None]
  - WITHDRAWAL SYNDROME [None]
